FAERS Safety Report 11529301 (Version 1)
Quarter: 2015Q3

REPORT INFORMATION
  Report Type: Spontaneous
  Country: US (occurrence: None)
  Receive Date: 20150918
  Receipt Date: 20150918
  Transmission Date: 20151125
  Serious: Yes (Disabling)
  Sender: FDA-Public Use
  Company Number: None

PATIENT
  Age: 60 Year
  Sex: Female
  Weight: 163.3 kg

DRUGS (19)
  1. NORCO [Concomitant]
     Active Substance: ACETAMINOPHEN\HYDROCODONE BITARTRATE
  2. METACLOPRAMINE [Concomitant]
  3. NITROSATA [Concomitant]
  4. RANITADINE HCL [Concomitant]
  5. IMATRIX [Concomitant]
  6. LYRICA [Suspect]
     Active Substance: PREGABALIN
     Indication: FIBROMYALGIA
     Route: 048
     Dates: start: 20150301, end: 20150531
  7. ALBUTERAL [Concomitant]
     Active Substance: ALBUTEROL
  8. HYDROCHLOROTHIAZIDE. [Concomitant]
     Active Substance: HYDROCHLOROTHIAZIDE
  9. LOSARTAN. [Concomitant]
     Active Substance: LOSARTAN
  10. INDERAL [Concomitant]
     Active Substance: PROPRANOLOL HYDROCHLORIDE
  11. INDERAL [Concomitant]
     Active Substance: PROPRANOLOL HYDROCHLORIDE
  12. QVAR [Concomitant]
     Active Substance: BECLOMETHASONE DIPROPIONATE
  13. TOPAMAX [Concomitant]
     Active Substance: TOPIRAMATE
  14. D3 [Concomitant]
     Active Substance: 25-HYDROXYCHOLECALCIFEROL, 5-TRANS-
  15. CLONAZEPAM. [Concomitant]
     Active Substance: CLONAZEPAM
  16. BUPROPION. [Concomitant]
     Active Substance: BUPROPION
  17. CYCLOBENZAPRINE [Concomitant]
     Active Substance: CYCLOBENZAPRINE
  18. AMBIEN [Concomitant]
     Active Substance: ZOLPIDEM TARTRATE
  19. SINGULAIR [Concomitant]
     Active Substance: MONTELUKAST SODIUM

REACTIONS (11)
  - Depression [None]
  - Pain [None]
  - Suicidal ideation [None]
  - Chills [None]
  - Headache [None]
  - Drug withdrawal syndrome [None]
  - Nausea [None]
  - Fatigue [None]
  - Vision blurred [None]
  - Insomnia [None]
  - Paranoia [None]

NARRATIVE: CASE EVENT DATE: 20150531
